FAERS Safety Report 8250408-1 (Version None)
Quarter: 2012Q2

REPORT INFORMATION
  Report Type: 
  Country: None (occurrence: None)
  Receive Date: 20120402
  Receipt Date: 20120326
  Transmission Date: 20120825
  Serious: Yes (Other)
  Sender: FDA-Public Use
  Company Number: US-PFIZER INC-2012078134

PATIENT

DRUGS (1)
  1. EFFEXOR XR [Suspect]
     Dosage: UNK

REACTIONS (5)
  - WITHDRAWAL SYNDROME [None]
  - NAUSEA [None]
  - DIABETES MELLITUS [None]
  - HEADACHE [None]
  - DIZZINESS [None]
